FAERS Safety Report 6804502-X (Version None)
Quarter: 2010Q2

REPORT INFORMATION
  Report Type: 
  Country: None (occurrence: None)
  Receive Date: 20100628
  Receipt Date: 20100628
  Transmission Date: 20101027
  Serious: Yes (Other)
  Sender: FDA-Public Use
  Company Number: None

PATIENT
  Age: 61 Year
  Sex: Female
  Weight: 79 kg

DRUGS (13)
  1. LEVOFLOXACIN [Suspect]
     Indication: WOUND INFECTION
     Dosage: 750 MG DAILY PO
     Route: 048
     Dates: start: 20100612, end: 20100618
  2. ASCORBIC ACID-VITAMIN C [Concomitant]
  3. ATENOLOL [Concomitant]
  4. CITALOPRAM HYDROBROMIDE [Concomitant]
  5. DIAZEPAM [Concomitant]
  6. DILAUDID-R-HYDROMORPHONE [Concomitant]
  7. DOCUSATE SODIUM [Concomitant]
  8. FEXOFENADINE [Concomitant]
  9. FOLIC ACID [Concomitant]
  10. NEURONTIN [Concomitant]
  11. LEVOTHYROXINE-LEVOXYL [Concomitant]
  12. LIDOCAINE -LIDODERM- [Concomitant]
  13. LISDEXAM [Concomitant]

REACTIONS (3)
  - ALANINE AMINOTRANSFERASE INCREASED [None]
  - ASPARTATE AMINOTRANSFERASE INCREASED [None]
  - CONFUSIONAL STATE [None]
